FAERS Safety Report 21734487 (Version 1)
Quarter: 2022Q4

REPORT INFORMATION
  Report Type: Spontaneous
  Country: US (occurrence: None)
  Receive Date: 20221215
  Receipt Date: 20221215
  Transmission Date: 20230113
  Serious: Yes (Hospitalization)
  Sender: FDA-Public Use
  Company Number: None

PATIENT
  Age: 19 Year
  Sex: Female
  Weight: 62.9 kg

DRUGS (5)
  1. CALASPARGASE PEGOL-MKNL [Suspect]
     Active Substance: CALASPARGASE PEGOL-MKNL
     Dosage: OTHER QUANTITY : 4297.5 UNIT;?
     Dates: end: 20221206
  2. CYTARABINE [Suspect]
     Active Substance: CYTARABINE
     Dates: end: 20221203
  3. DAUNORUBICIN [Suspect]
     Active Substance: DAUNORUBICIN
     Dates: end: 20221203
  4. PREDNISOLONE [Suspect]
     Active Substance: PREDNISOLONE
     Dates: end: 20221206
  5. VINCRISTINE SULFATE [Suspect]
     Active Substance: VINCRISTINE SULFATE
     Dates: end: 20221203

REACTIONS (2)
  - Pyrexia [None]
  - Gram stain positive [None]

NARRATIVE: CASE EVENT DATE: 20221206
